FAERS Safety Report 5815076-4 (Version None)
Quarter: 2008Q3

REPORT INFORMATION
  Report Type: 
  Country: None (occurrence: None)
  Receive Date: 20080718
  Receipt Date: 20080710
  Transmission Date: 20090109
  Serious: Yes (Hospitalization)
  Sender: FDA-Public Use
  Company Number: FR-ABBOTT-08P-056-0462187-00

PATIENT
  Sex: Female

DRUGS (6)
  1. MICROPAKINE GRANULE [Suspect]
     Indication: EPILEPSY
     Route: 048
     Dates: start: 20060301, end: 20071201
  2. MICROPAKINE GRANULE [Suspect]
     Route: 048
     Dates: start: 20071201
  3. CLOBAZAM [Concomitant]
     Indication: EPILEPSY
     Route: 048
     Dates: start: 20060301, end: 20071201
  4. CLOBAZAM [Concomitant]
     Route: 048
     Dates: start: 20071201
  5. TOPIRAMATE [Concomitant]
     Indication: EPILEPSY
     Route: 048
     Dates: start: 20061001, end: 20071201
  6. TOPIRAMATE [Concomitant]
     Route: 048
     Dates: start: 20071201

REACTIONS (9)
  - DRUG INEFFECTIVE [None]
  - DRUG LEVEL ABOVE THERAPEUTIC [None]
  - EPILEPSY [None]
  - HYPOTHYROIDISM [None]
  - LEUKOPENIA [None]
  - MACROCYTOSIS [None]
  - NEUTROPENIA [None]
  - THROMBOCYTOPENIA [None]
  - WEIGHT INCREASED [None]
